FAERS Safety Report 21696434 (Version 1)
Quarter: 2022Q4

REPORT INFORMATION
  Report Type: Report from Study
  Country: DE (occurrence: DE)
  Receive Date: 20221207
  Receipt Date: 20221207
  Transmission Date: 20230113
  Serious: Yes (Other)
  Sender: FDA-Public Use
  Company Number: DE-BRISTOL-MYERS SQUIBB COMPANY-2022-147306

PATIENT
  Age: 65 Year
  Sex: Female

DRUGS (8)
  1. NIVOLUMAB [Suspect]
     Active Substance: NIVOLUMAB
     Indication: Non-small cell lung cancer
     Route: 042
     Dates: start: 20170215, end: 20210825
  2. Paracodin Tropfen [Concomitant]
     Indication: Neoplasm
     Dosage: 10 GTT BEI BEDARF (AS NEEDED)
     Route: 065
  3. ACC long BTA [Concomitant]
     Indication: Neoplasm
     Dosage: 1-0-1 BEI BEDARF (AS NEEDED)
     Route: 065
  4. Metahexal Tabl [Concomitant]
     Indication: Neoplasm
     Dosage: 0.5 DAILY
     Route: 065
  5. METAMIZOLE [Concomitant]
     Active Substance: METAMIZOLE
     Indication: Neoplasm
     Dosage: 1 TABL.BEI BEDARF (AS NEEDED)
     Route: 065
     Dates: start: 20170217
  6. MCP ret.Ksp [Concomitant]
     Indication: Neoplasm
     Dosage: 1-0-0
     Route: 065
     Dates: start: 20170222
  7. Atosil [Concomitant]
     Indication: Neoplasm
     Dosage: 1-0-0
     Route: 065
  8. NAC Brausetabletten [Concomitant]
     Indication: Neoplasm
     Dosage: BEI BEDARF (AS NEEDED)
     Route: 065
     Dates: start: 201802

REACTIONS (2)
  - Intracranial aneurysm [Recovered/Resolved]
  - Condition aggravated [Unknown]

NARRATIVE: CASE EVENT DATE: 20210901
